FAERS Safety Report 19360712 (Version 3)
Quarter: 2022Q2

REPORT INFORMATION
  Report Type: Report from Study
  Country: US (occurrence: None)
  Receive Date: 20210602
  Receipt Date: 20220615
  Transmission Date: 20220721
  Serious: No
  Sender: FDA-Public Use
  Company Number: US-MDD US OPERATIONS-MDD202104-000710

PATIENT
  Age: 72 Year
  Sex: Female

DRUGS (28)
  1. APOKYN [Suspect]
     Active Substance: APOMORPHINE HYDROCHLORIDE
     Indication: Parkinson^s disease
     Dosage: UP TO 0.3 ML
     Route: 058
  2. APOKYN [Suspect]
     Active Substance: APOMORPHINE HYDROCHLORIDE
  3. APOKYN [Suspect]
     Active Substance: APOMORPHINE HYDROCHLORIDE
     Route: 058
     Dates: start: 202103
  4. LEVOXYL [Concomitant]
     Active Substance: LEVOTHYROXINE SODIUM
  5. REQUIP [Concomitant]
     Active Substance: ROPINIROLE HYDROCHLORIDE
  6. Stalevo 100 [Concomitant]
  7. COGENTIN [Concomitant]
     Active Substance: BENZTROPINE MESYLATE
  8. COGENTIN [Concomitant]
     Active Substance: BENZTROPINE MESYLATE
  9. COGENTIN [Concomitant]
     Active Substance: BENZTROPINE MESYLATE
  10. AMANTADINE [Concomitant]
     Active Substance: AMANTADINE
  11. BEXTRA [Concomitant]
     Active Substance: VALDECOXIB
  12. TOPAMAX [Concomitant]
     Active Substance: TOPIRAMATE
  13. Mature Multivitamin [Concomitant]
     Dosage: NOT PROVIDED
  14. Grapeseed Extract [Concomitant]
  15. FLAXSEED [Concomitant]
     Active Substance: FLAX SEED
  16. FISH OIL\OMEGA-3 FATTY ACIDS [Concomitant]
     Active Substance: FISH OIL\OMEGA-3 FATTY ACIDS
  17. Enhanced CLA [Concomitant]
  18. Super Enzymes [Concomitant]
  19. CALCIUM [Concomitant]
     Active Substance: CALCIUM
  20. VITAMIN C [Concomitant]
     Active Substance: ASCORBIC ACID
  21. Green Tea Extract [Concomitant]
  22. Mega Vitamin B [Concomitant]
  23. Folic Acid Plus Vit. B-12 and Se [Concomitant]
     Dosage: NOT PROVIDED
  24. VITAMIN D [Concomitant]
     Active Substance: VITAMIN D NOS
  25. BAYER ASPIRIN [Concomitant]
     Active Substance: ASPIRIN
  26. VITAMIN E [Concomitant]
     Active Substance: .ALPHA.-TOCOPHEROL
  27. GINKGO [Concomitant]
     Active Substance: GINKGO
  28. CHONDROITIN SULFATE A\GLUCOSAMINE [Concomitant]
     Active Substance: CHONDROITIN SULFATE A\GLUCOSAMINE

REACTIONS (7)
  - Injection site cellulitis [Recovered/Resolved]
  - Tremor [Unknown]
  - Restless legs syndrome [Unknown]
  - Injection site haemorrhage [Unknown]
  - Contusion [Unknown]
  - Injection site reaction [Unknown]
  - Dyspnoea [Unknown]

NARRATIVE: CASE EVENT DATE: 20210505
